FAERS Safety Report 5737362-9 (Version None)
Quarter: 2008Q2

REPORT INFORMATION
  Report Type: 
  Country: None (occurrence: None)
  Receive Date: 20080514
  Receipt Date: 20080507
  Transmission Date: 20081010
  Serious: Yes (Disabling)
  Sender: FDA-Public Use
  Company Number: PHHY2008IT07508

PATIENT
  Age: 63 Year
  Sex: Male

DRUGS (2)
  1. ZOMETA [Suspect]
     Indication: RENAL CANCER METASTATIC
     Dosage: 4 MG, QMO
     Route: 042
     Dates: start: 20040101, end: 20060331
  2. SUTENT [Concomitant]
     Route: 048

REACTIONS (1)
  - OSTEONECROSIS [None]
